FAERS Safety Report 4416587-9 (Version None)
Quarter: 2004Q2

REPORT INFORMATION
  Report Type: 
  Country: None (occurrence: None)
  Receive Date: 20040630
  Receipt Date: 20040510
  Transmission Date: 20050107
  Serious: Yes (Hospitalization)
  Sender: FDA-Public Use
  Company Number: 04P-163-0260194-00

PATIENT
  Age: 53 Year
  Sex: Female
  Weight: 90.7194 kg

DRUGS (9)
  1. HUMIRA [Suspect]
     Indication: RHEUMATOID ARTHRITIS
     Dosage: 40 MG, 1 IN 2 WK; 1 IN 1 WK  : SUBCUTANEOUS
     Route: 058
     Dates: start: 20031101, end: 20031213
  2. HUMIRA [Suspect]
     Indication: RHEUMATOID ARTHRITIS
     Dosage: 40 MG, 1 IN 2 WK; 1 IN 1 WK  : SUBCUTANEOUS
     Route: 058
     Dates: start: 20031201, end: 20040302
  3. HUMIRA [Suspect]
     Indication: RHEUMATOID ARTHRITIS
     Dosage: 40 MG, 1 IN 2 WK; 1 IN 1 WK  : SUBCUTANEOUS
     Route: 058
     Dates: start: 20040302, end: 20040421
  4. HUMIRA [Suspect]
     Indication: RHEUMATOID ARTHRITIS
     Dosage: 40 MG, 1 IN 2 WK; 1 IN 1 WK  : SUBCUTANEOUS
     Route: 058
     Dates: start: 20040428
  5. NAPROXEN SODIUM [Concomitant]
  6. PREDNISONE [Concomitant]
  7. METHOTREXATE [Concomitant]
  8. FOLIC ACID [Concomitant]
  9. METOPROLOL TARTRATE [Concomitant]

REACTIONS (2)
  - PNEUMONIA BACTERIAL [None]
  - SINUSITIS [None]
